FAERS Safety Report 8942897 (Version 1)
Quarter: 2012Q4

REPORT INFORMATION
  Report Type: 
  Country: US (occurrence: US)
  Receive Date: 20121204
  Receipt Date: 20121204
  Transmission Date: 20130627
  Serious: Yes (Life-Threatening, Hospitalization, Other)
  Sender: FDA-Public Use
  Company Number: US-BAYER-2012-089948

PATIENT
  Age: 63 Year
  Sex: Male
  Weight: 92.7 kg

DRUGS (25)
  1. SORAFENIB (RAF KINASE INHIBITOR) [Suspect]
     Indication: METASTATIC MELANOMA
     Dosage: 400 mg, BID
     Route: 048
     Dates: start: 20120808, end: 20120825
  2. SORAFENIB (RAF KINASE INHIBITOR) [Suspect]
     Indication: METASTATIC MELANOMA
     Dosage: 200 mg, BID
     Route: 048
     Dates: start: 20120808, end: 20121126
  3. BORTEZOMIB [Suspect]
     Indication: METASTATIC MELANOMA
     Dosage: 1 mg/m2, OW
     Route: 042
     Dates: start: 20120808, end: 20120824
  4. BORTEZOMIB [Suspect]
     Indication: METASTATIC MELANOMA
     Dosage: 2 mg/m2, OW
     Route: 042
     Dates: start: 20120808, end: 20121116
  5. DIAZEPAM [Concomitant]
     Dosage: 5 mg, QHS
     Route: 048
     Dates: start: 20080101
  6. DILAUDID [Concomitant]
     Dosage: 8 mg, PRN
     Route: 048
     Dates: start: 20120101, end: 20120824
  7. DILAUDID [Concomitant]
     Dosage: 10 mg
     Route: 048
     Dates: start: 20120824
  8. FENTANYL [Concomitant]
     Dosage: 100 MCG/HR
     Dates: start: 20120101
  9. FENTANYL [Concomitant]
     Dosage: 250 mcg
     Dates: start: 20120824
  10. FLUOXETINE HCL [Concomitant]
     Dosage: 80 mg, QD
     Route: 048
     Dates: start: 20120101
  11. GABAPENTIN [Concomitant]
     Dosage: 200 mg, TID
     Route: 048
     Dates: start: 20120101
  12. GABAPENTIN [Concomitant]
     Dosage: UNK
     Dates: start: 20120921
  13. ACETAMINOPHEN [Concomitant]
     Dosage: 325 mg, PRN
     Dates: start: 20120813
  14. LIDOCAINE [Concomitant]
     Dosage: UNK UNK, QID
     Route: 048
     Dates: start: 20120817
  15. LIDOCAINE [Concomitant]
     Dosage: UNK
     Dates: start: 20121012
  16. MAALOX [Concomitant]
     Dosage: UNK UNK, QID
     Route: 048
     Dates: start: 20120817
  17. MAALOX [Concomitant]
     Dosage: UNK
     Dates: start: 20121012
  18. MAALOX [Concomitant]
     Dosage: UNK
     Dates: start: 20121116
  19. DIPHENHYDRAMIN [Concomitant]
     Dosage: UNK UNK, QID
     Route: 048
     Dates: start: 20120817
  20. DIPHENHYDRAMIN [Concomitant]
     Dosage: UNK
     Dates: start: 20121012
  21. CYMBALTA [Concomitant]
     Dosage: UNK
     Dates: start: 20120903
  22. COLACE [Concomitant]
     Dosage: UNK
     Dates: start: 20120828
  23. LISINOPRIL [Concomitant]
     Dosage: UNK
     Dates: start: 20121102
  24. OMEPRAZOLE [Concomitant]
     Dosage: UNK
     Dates: start: 20120102
  25. SENNA [Concomitant]
     Dosage: UNK
     Dates: start: 20120828

REACTIONS (7)
  - Tumour haemorrhage [None]
  - Intestinal obstruction [None]
  - Tumour haemorrhage [None]
  - Metastatic malignant melanoma [None]
  - Abdominal pain [None]
  - Vomiting [None]
  - Fatigue [None]
